FAERS Safety Report 6698817-6 (Version None)
Quarter: 2010Q2

REPORT INFORMATION
  Report Type: 
  Country: None (occurrence: None)
  Receive Date: 20100426
  Receipt Date: 20100426
  Transmission Date: 20101027
  Serious: Yes (Death)
  Sender: FDA-Public Use
  Company Number: None

PATIENT
  Age: 81 Year
  Sex: Male

DRUGS (10)
  1. REVLIMID [Suspect]
     Indication: MULTIPLE MYELOMA
     Dosage: REVLIMID 10 MG DAILY X21D ON,7D OFF ORAL, LESS THAN ONE MONTH
     Route: 048
     Dates: start: 20090921
  2. PROCRIT [Concomitant]
  3. NEUPOGEN [Concomitant]
  4. LANOXIN [Concomitant]
  5. WARFARIN SODIUM [Concomitant]
  6. CYANOCOBALAMIN [Concomitant]
  7. METOPROLOL [Concomitant]
  8. AMLODIPINE [Concomitant]
  9. FINASTERIDE [Concomitant]
  10. TERAZOSIN HCL [Concomitant]

REACTIONS (10)
  - AZOTAEMIA [None]
  - CONFUSIONAL STATE [None]
  - DEEP VEIN THROMBOSIS [None]
  - HYPERNATRAEMIA [None]
  - HYPOTENSION [None]
  - MENTAL STATUS CHANGES [None]
  - MULTI-ORGAN FAILURE [None]
  - SEPTIC SHOCK [None]
  - SPEECH DISORDER [None]
  - STAPHYLOCOCCAL SEPSIS [None]
